FAERS Safety Report 4301754-5 (Version None)
Quarter: 2004Q1

REPORT INFORMATION
  Report Type: 
  Country: None (occurrence: None)
  Receive Date: 20040218
  Receipt Date: 20040116
  Transmission Date: 20041129
  Serious: Yes (Other)
  Sender: FDA-Public Use
  Company Number: 2004-01-0834

PATIENT
  Sex: Male
  Weight: 97.5234 kg

DRUGS (2)
  1. PEG-INTRON [Suspect]
     Dosage: SUBCUTANEOUS
     Route: 058
     Dates: end: 20030101
  2. REBETOL [Suspect]
     Dosage: ORAL
     Route: 048
     Dates: end: 20030101

REACTIONS (3)
  - AGGRESSION [None]
  - ANAEMIA [None]
  - DEPRESSED MOOD [None]
